FAERS Safety Report 7074650-0 (Version None)
Quarter: 2010Q4

REPORT INFORMATION
  Report Type: 
  Country: None (occurrence: None)
  Receive Date: 20101029
  Receipt Date: 20101021
  Transmission Date: 20110411
  Serious: Yes (Other)
  Sender: FDA-Public Use
  Company Number: B0359776A

PATIENT
  Sex: Male

DRUGS (4)
  1. PAROXETINE HCL [Suspect]
     Route: 065
  2. ASPIRIN [Suspect]
     Route: 065
  3. IBUPROFEN [Suspect]
     Route: 065
  4. ALCOHOL [Suspect]
     Route: 065

REACTIONS (4)
  - COMPLETED SUICIDE [None]
  - DRUG WITHDRAWAL SYNDROME [None]
  - OVERDOSE [None]
  - SUICIDE ATTEMPT [None]
